FAERS Safety Report 19074459 (Version 2)
Quarter: 2021Q2

REPORT INFORMATION
  Report Type: Spontaneous
  Country: AR (occurrence: AR)
  Receive Date: 20210330
  Receipt Date: 20210405
  Transmission Date: 20210717
  Serious: Yes (Hospitalization, Other)
  Sender: FDA-Public Use
  Company Number: AR-PFIZER INC-2021319393

PATIENT
  Age: 76 Year
  Sex: Female

DRUGS (1)
  1. XELJANZ XR [Suspect]
     Active Substance: TOFACITINIB CITRATE
     Indication: RHEUMATOID ARTHRITIS
     Dosage: 11 MG, 1X/DAY
     Dates: start: 20190215, end: 20210213

REACTIONS (5)
  - Disorientation [Not Recovered/Not Resolved]
  - COVID-19 [Not Recovered/Not Resolved]
  - Platelet count decreased [Unknown]
  - Full blood count abnormal [Unknown]
  - Globulins decreased [Unknown]

NARRATIVE: CASE EVENT DATE: 2021
